FAERS Safety Report 4632732-4 (Version None)
Quarter: 2005Q2

REPORT INFORMATION
  Report Type: 
  Country: None (occurrence: None)
  Receive Date: 20050412
  Receipt Date: 20050223
  Transmission Date: 20051028
  Serious: Yes (Death)
  Sender: FDA-Public Use
  Company Number: GB-BOEHRINGER INGELHEIM PHARMACEUTICALS, INC.-2005-UK-00308UK

PATIENT
  Sex: Male

DRUGS (3)
  1. ATROVENT [Suspect]
     Dosage: 20MCGS/PUFF, 4 PUFFS 4 X DAILY
     Route: 055
  2. SALBUTAMOL [Concomitant]
     Dosage: 3 - 4 PUFFS EVERY 2 HOURS
     Route: 055
  3. UNIPHYLLIN CONTINUS [Concomitant]
     Dosage: 1 TO BE TAKEN TWICE DAILY

REACTIONS (1)
  - LUNG INFECTION PSEUDOMONAL [None]
